FAERS Safety Report 5281351-8 (Version None)
Quarter: 2007Q1

REPORT INFORMATION
  Report Type: 
  Country: None (occurrence: None)
  Receive Date: 20070330
  Receipt Date: 20070320
  Transmission Date: 20070707
  Serious: Yes (Hospitalization)
  Sender: FDA-Public Use
  Company Number: US-JNJFOC-20070305517

PATIENT
  Sex: Male

DRUGS (4)
  1. LEVAQUIN [Suspect]
     Indication: RESPIRATORY DISORDER
     Route: 048
  2. LEVAQUIN [Suspect]
     Indication: URINARY TRACT INFECTION
     Route: 048
  3. UNSPECIFIED DRUG [Suspect]
     Indication: RESPIRATORY DISORDER
     Route: 042
  4. UNSPECIFIED DRUG [Suspect]
     Indication: URINARY TRACT INFECTION
     Route: 042

REACTIONS (1)
  - GENERALISED OEDEMA [None]
